FAERS Safety Report 8121129-0 (Version None)
Quarter: 2012Q1

REPORT INFORMATION
  Report Type: 
  Country: None (occurrence: None)
  Receive Date: 20120203
  Receipt Date: 20120123
  Transmission Date: 20120608
  Serious: Yes (Hospitalization)
  Sender: FDA-Public Use
  Company Number: 1000007206

PATIENT
  Age: 58 Year
  Sex: Female

DRUGS (7)
  1. VOLTAREN [Suspect]
     Dosage: (50 MG), ORAL
     Route: 048
     Dates: start: 20090501, end: 20090508
  2. IMIGRAN (SUMATRIPTAN) (TABLETS) (SUMATRIPTAN) [Concomitant]
  3. BLOPRESS (CANDESARTAN CILEXETIL) (TABLETS) (CANDESARTAN CILEXETIL) [Concomitant]
  4. DAFALGAN (PARACETAMOL) (TABLETS) (PARACETAMOL) [Concomitant]
  5. INDERAL (PROPRANOLOL) (TABLETS) (PROPRANOLOL) [Concomitant]
  6. ESCITALOPRAM OXALATE [Suspect]
     Dosage: ORAL
     Route: 048
  7. XANAX (ALPRAZOLAM) (TABLETS) (ALPRAZOLAM) [Concomitant]

REACTIONS (2)
  - ANAEMIA [None]
  - GASTRIC ULCER HAEMORRHAGE [None]
